FAERS Safety Report 14634485 (Version 1)
Quarter: 2018Q1

REPORT INFORMATION
  Report Type: Spontaneous
  Country: FR (occurrence: FR)
  Receive Date: 20180314
  Receipt Date: 20180314
  Transmission Date: 20180509
  Serious: Yes (Other)
  Sender: FDA-Public Use
  Company Number: FR-MERCK KGAA-2043674

PATIENT
  Age: 27 Year
  Sex: Female

DRUGS (1)
  1. NOVOTHYROX [Suspect]
     Active Substance: LEVOTHYROXINE SODIUM
     Indication: PRODUCT USED FOR UNKNOWN INDICATION
     Dates: start: 2017

REACTIONS (13)
  - Respiratory disorder [None]
  - Anxiety [None]
  - Somnolence [None]
  - Pain in extremity [None]
  - Loss of personal independence in daily activities [None]
  - Nausea [None]
  - Fatigue [None]
  - Irritability [None]
  - Alopecia [None]
  - Anhedonia [None]
  - Dysgeusia [None]
  - Abdominal distension [None]
  - Depressed mood [None]

NARRATIVE: CASE EVENT DATE: 2017
